FAERS Safety Report 9982045 (Version 2)
Quarter: 2014Q1

REPORT INFORMATION
  Report Type: Report from Study
  Country: US (occurrence: US)
  Receive Date: 20140307
  Receipt Date: 20140307
  Transmission Date: 20141002
  Serious: No
  Sender: FDA-Public Use
  Company Number: US-ABBVIE-13P-163-1161528-00

PATIENT
  Age: 66 Year
  Sex: Male

DRUGS (8)
  1. HUMIRA [Suspect]
     Indication: COLITIS ULCERATIVE
     Dates: start: 20131021
  2. NOVOLOG [Concomitant]
     Indication: TYPE 1 DIABETES MELLITUS
  3. LISINOPRIL [Concomitant]
     Indication: HYPERTENSION
     Dosage: DAILY
  4. AMLODIPINE [Concomitant]
     Indication: HYPERTENSION
     Dosage: DAILY
  5. CARVEDILOL [Concomitant]
     Indication: HYPERTENSION
  6. DIZANIDINE [Concomitant]
     Indication: MUSCLE RELAXANT THERAPY
     Dosage: AT BEDTIME
  7. OXYCODONE [Concomitant]
     Indication: ANALGESIC THERAPY
     Dosage: 10/325, TWICE DAILY
  8. OXYCODONE [Concomitant]
     Indication: ARTHRITIS

REACTIONS (3)
  - Malaise [Recovered/Resolved]
  - Headache [Recovered/Resolved]
  - Depressed mood [Recovered/Resolved]
